FAERS Safety Report 6074228-1 (Version None)
Quarter: 2009Q1

REPORT INFORMATION
  Report Type: 
  Country: None (occurrence: None)
  Receive Date: 20090211
  Receipt Date: 20090204
  Transmission Date: 20090719
  Serious: Yes (Disabling, Other)
  Sender: FDA-Public Use
  Company Number: US-SANOFI-SYNTHELABO-A03200900518

PATIENT
  Age: 69 Year
  Sex: Female

DRUGS (7)
  1. ASPIRIN [Suspect]
     Indication: DRUG USE FOR UNKNOWN INDICATION
     Dosage: 2 TABLETS DAILY
     Route: 048
  2. SULINDAC [Suspect]
     Indication: PAIN
     Dosage: UNK
     Route: 065
     Dates: end: 20090101
  3. SULINDAC [Suspect]
     Indication: INFLAMMATION
     Dosage: UNK
     Route: 065
     Dates: end: 20090101
  4. NITRO PILLS [Concomitant]
     Indication: CHEST PAIN
     Route: 065
  5. VYTORIN [Concomitant]
     Indication: DRUG USE FOR UNKNOWN INDICATION
     Dosage: UNK
     Route: 048
  6. TOPROL-XL [Concomitant]
     Indication: DRUG USE FOR UNKNOWN INDICATION
     Dosage: UNK
     Route: 048
  7. PLAVIX [Suspect]
     Indication: STENT PLACEMENT
     Route: 048
     Dates: start: 20080101

REACTIONS (6)
  - CONTUSION [None]
  - DIZZINESS [None]
  - GAIT DISTURBANCE [None]
  - GASTROINTESTINAL HAEMORRHAGE [None]
  - OEDEMA PERIPHERAL [None]
  - PARAESTHESIA ORAL [None]
